FAERS Safety Report 5184699-0 (Version None)
Quarter: 2006Q4

REPORT INFORMATION
  Report Type: 
  Country: None (occurrence: None)
  Receive Date: 20061220
  Receipt Date: 20060410
  Transmission Date: 20070319
  Serious: No
  Sender: FDA-Public Use
  Company Number: CHPA2006US03282

PATIENT
  Age: 62 Year
  Sex: Female
  Weight: 77.3 kg

DRUGS (4)
  1. NICODERM [Suspect]
     Route: 062
  2. NICOTINE [Suspect]
     Dosage: 21MG PER DAY
     Route: 062
     Dates: start: 20060302, end: 20060326
  3. NEXIUM [Concomitant]
  4. VYTORIN [Concomitant]

REACTIONS (3)
  - BLOOD PRESSURE INCREASED [None]
  - DIZZINESS [None]
  - NAUSEA [None]
